FAERS Safety Report 7123582-8 (Version None)
Quarter: 2010Q4

REPORT INFORMATION
  Report Type: 
  Country: None (occurrence: None)
  Receive Date: 20101125
  Receipt Date: 20101117
  Transmission Date: 20110411
  Serious: Yes (Death)
  Sender: FDA-Public Use
  Company Number: ES-NOVOPROD-318688

PATIENT
  Age: 88 Year
  Sex: Male

DRUGS (7)
  1. NOVONORM [Suspect]
     Indication: TYPE 2 DIABETES MELLITUS
     Dosage: 2 MG, QD
     Route: 048
     Dates: start: 20100101, end: 20100605
  2. OMEPRAZOL                          /00661201/ [Concomitant]
     Dosage: 20 MG, QD
  3. PREDNISOLONE [Concomitant]
     Indication: POLYARTHRITIS
     Dosage: 50 MG, QD
     Route: 048
     Dates: start: 20100605, end: 20100605
  4. ARAVA [Concomitant]
     Indication: POLYARTHRITIS
     Dosage: 20 MG, QD
     Route: 048
     Dates: start: 20100605, end: 20100605
  5. CARDURA [Concomitant]
     Indication: HYPERTENSION
     Dosage: 4 MG, QD
     Route: 048
     Dates: end: 20100605
  6. HIBOR [Concomitant]
     Indication: ARTERIAL INSUFFICIENCY
     Dosage: 2500 U, QD
     Route: 058
     Dates: end: 20100605
  7. TARDYFERON                         /00023503/ [Concomitant]
     Indication: IRON DEFICIENCY
     Dosage: 80 MG, QD
     Route: 048
     Dates: end: 20100605

REACTIONS (4)
  - ASPIRATION [None]
  - HYPOGLYCAEMIA [None]
  - RESPIRATORY FAILURE [None]
  - SEPSIS [None]
